FAERS Safety Report 13519229 (Version 2)
Quarter: 2017Q2

REPORT INFORMATION
  Report Type: Spontaneous
  Country: EE (occurrence: EE)
  Receive Date: 20170505
  Receipt Date: 20170607
  Transmission Date: 20170830
  Serious: Yes (Other)
  Sender: FDA-Public Use
  Company Number: EE-GE HEALTHCARE LIFE SCIENCES-2017CSU001048

PATIENT

DRUGS (36)
  1. OMNISCAN [Suspect]
     Active Substance: GADODIAMIDE
     Dosage: 5 ML, SINGLE
     Route: 042
     Dates: start: 20060228, end: 20060228
  2. OMNISCAN [Suspect]
     Active Substance: GADODIAMIDE
     Dosage: 10 ML, SINGLE
     Route: 042
     Dates: start: 20070205, end: 20070205
  3. OMNISCAN [Suspect]
     Active Substance: GADODIAMIDE
     Dosage: 5 ML, SINGLE
     Route: 042
     Dates: start: 20070918, end: 20070918
  4. VISIPAQUE [Concomitant]
     Active Substance: IODIXANOL
     Indication: BRAIN NEOPLASM
     Dosage: 20 ML, SINGLE
     Route: 042
     Dates: start: 20061113, end: 20061113
  5. IFOSFAMIDE. [Concomitant]
     Active Substance: IFOSFAMIDE
     Dosage: UNK
     Dates: start: 20050923, end: 20060424
  6. CARBOPLATIN. [Concomitant]
     Active Substance: CARBOPLATIN
     Dosage: UNK
     Dates: start: 20030404, end: 200404
  7. CARBOPLATIN. [Concomitant]
     Active Substance: CARBOPLATIN
     Dosage: UNK
     Dates: start: 20050923, end: 20060424
  8. SOMATROPIN AND SOMATROPIN AGONISTS [Concomitant]
     Dosage: 0.4 MG, QD
     Route: 058
     Dates: start: 20090105, end: 201704
  9. OMNISCAN [Suspect]
     Active Substance: GADODIAMIDE
     Indication: BRAIN NEOPLASM
     Dosage: 3.8 ML, SINGLE
     Route: 042
     Dates: start: 20040423, end: 20040423
  10. OMNISCAN [Suspect]
     Active Substance: GADODIAMIDE
     Dosage: 10 ML, SINGLE
     Route: 042
     Dates: start: 20050706, end: 20050706
  11. OMNISCAN [Suspect]
     Active Substance: GADODIAMIDE
     Dosage: 8 ML, SINGLE
     Route: 042
     Dates: start: 20100408, end: 20100408
  12. OMNISCAN [Suspect]
     Active Substance: GADODIAMIDE
     Dosage: 15 ML, SINGLE
     Route: 042
     Dates: start: 20151103, end: 20151103
  13. OMNISCAN [Suspect]
     Active Substance: GADODIAMIDE
     Dosage: 5 ML, SINGLE
     Route: 042
     Dates: start: 20070522, end: 20070522
  14. ETOPOSIDE. [Concomitant]
     Active Substance: ETOPOSIDE
     Dosage: UNK
     Dates: start: 20050923, end: 20060424
  15. CYCLOPHOSPHAMIDE. [Concomitant]
     Active Substance: CYCLOPHOSPHAMIDE
     Dosage: UNK
     Dates: start: 20030404, end: 200404
  16. OMNISCAN [Suspect]
     Active Substance: GADODIAMIDE
     Dosage: 3 ML, SINGLE
     Route: 042
     Dates: start: 20050302, end: 20050302
  17. OMNISCAN [Suspect]
     Active Substance: GADODIAMIDE
     Dosage: 5 ML, SINGLE
     Route: 042
     Dates: start: 20060703, end: 20060703
  18. OMNISCAN [Suspect]
     Active Substance: GADODIAMIDE
     Dosage: 5 ML, SINGLE
     Route: 042
     Dates: start: 20090420, end: 20090420
  19. OMNISCAN [Suspect]
     Active Substance: GADODIAMIDE
     Dosage: 15 ML, SINGLE
     Route: 042
     Dates: start: 20110214, end: 20110214
  20. MIDAZOLAM [Concomitant]
     Active Substance: MIDAZOLAM HYDROCHLORIDE
  21. OMNISCAN [Suspect]
     Active Substance: GADODIAMIDE
     Dosage: 10 ML, SINGLE
     Route: 042
     Dates: start: 20050907, end: 20050907
  22. GADOVIST [Concomitant]
     Active Substance: GADOBUTROL
     Indication: BRAIN NEOPLASM
     Dosage: 4 ML, SINGLE
     Route: 042
     Dates: start: 20120509, end: 20120509
  23. VINCRISTINE [Concomitant]
     Active Substance: VINCRISTINE
     Dosage: UNK
     Dates: start: 20030404, end: 200404
  24. VINCRISTINE [Concomitant]
     Active Substance: VINCRISTINE
     Dosage: UNK
     Dates: start: 20050923, end: 20060424
  25. IFOSFAMIDE. [Concomitant]
     Active Substance: IFOSFAMIDE
     Dosage: UNK
     Dates: start: 20030404, end: 200404
  26. ETOPOSIDE. [Concomitant]
     Active Substance: ETOPOSIDE
     Dosage: UNK
     Dates: start: 20030404, end: 200404
  27. ONDANSETRON                        /00955302/ [Concomitant]
     Dosage: UNK
     Dates: start: 20050404, end: 20060424
  28. SODIUM THIOPENTAL MITSUBISHI [Concomitant]
  29. OMNISCAN [Suspect]
     Active Substance: GADODIAMIDE
     Dosage: 3 ML, SINGLE
     Route: 042
     Dates: start: 20041021, end: 20041021
  30. OMNISCAN [Suspect]
     Active Substance: GADODIAMIDE
     Dosage: 10 ML, SINGLE
     Route: 042
     Dates: start: 20130513, end: 20130513
  31. OMNISCAN [Suspect]
     Active Substance: GADODIAMIDE
     Dosage: 13 ML, SINGLE
     Route: 042
     Dates: start: 20140703, end: 20140703
  32. CYCLOPHOSPHAMIDE. [Concomitant]
     Active Substance: CYCLOPHOSPHAMIDE
     Dosage: UNK
     Dates: start: 20050923, end: 20060424
  33. OMNISCAN [Suspect]
     Active Substance: GADODIAMIDE
     Dosage: UNK
  34. LENOGRASTIM [Concomitant]
     Active Substance: LENOGRASTIM
     Dosage: 75 UNK, UNK
     Route: 042
     Dates: start: 200604
  35. DEXAMETHASONE                      /00016002/ [Concomitant]
     Active Substance: DEXAMETHASONE SODIUM PHOSPHATE
     Dosage: UNK
     Dates: start: 20050404, end: 20060424
  36. SOMATROPIN AND SOMATROPIN AGONISTS [Concomitant]
     Dosage: 1.4 MG, QD
     Route: 058
     Dates: start: 20090105, end: 201704

REACTIONS (2)
  - Nuclear magnetic resonance imaging brain abnormal [Unknown]
  - Drug clearance decreased [Unknown]

NARRATIVE: CASE EVENT DATE: 20160718
